FAERS Safety Report 9833200 (Version 3)
Quarter: 2014Q1

REPORT INFORMATION
  Report Type: Report from Study
  Country: US (occurrence: US)
  Receive Date: 20140121
  Receipt Date: 20140318
  Transmission Date: 20141002
  Serious: Yes (Other)
  Sender: FDA-Public Use
  Company Number: US-ABBVIE-14P-163-1189488-00

PATIENT
  Age: 67 Year
  Sex: Male
  Weight: 97.16 kg

DRUGS (9)
  1. HUMIRA [Suspect]
     Indication: PSORIASIS
     Route: 058
     Dates: start: 201307, end: 20131210
  2. HUMIRA [Suspect]
     Indication: PSORIASIS
     Dates: start: 20131224, end: 20131224
  3. CALCIPOTRIENE [Concomitant]
     Indication: PSORIASIS
     Route: 061
  4. CLOBETASOL PROPIONATE [Concomitant]
     Indication: PSORIASIS
     Route: 061
  5. LISINOPRIL [Concomitant]
     Indication: HYPERTENSION
  6. METFORMIN [Concomitant]
     Indication: DIABETES MELLITUS
  7. LANTUS [Concomitant]
     Indication: DIABETES MELLITUS
     Route: 058
  8. NOVOLOG [Concomitant]
     Indication: DIABETES MELLITUS
     Route: 058
  9. ASPIRIN [Concomitant]
     Indication: CARDIOVASCULAR EVENT PROPHYLAXIS

REACTIONS (3)
  - Hepatic neoplasm [Unknown]
  - Hepatic cancer [Unknown]
  - Fatigue [Not Recovered/Not Resolved]
